FAERS Safety Report 8326060-3 (Version None)
Quarter: 2012Q2

REPORT INFORMATION
  Report Type: 
  Country: None (occurrence: None)
  Receive Date: 20120501
  Receipt Date: 20120419
  Transmission Date: 20120825
  Serious: Yes (Other)
  Sender: FDA-Public Use
  Company Number: US-GLAXOSMITHKLINE-A0974357A

PATIENT
  Age: 73 Year
  Sex: Male

DRUGS (3)
  1. ALLOPURINOL [Concomitant]
  2. HIGH BLOOD PRESSURE PILL [Concomitant]
  3. VOTRIENT [Suspect]
     Indication: RENAL CELL CARCINOMA
     Dosage: 600MG PER DAY
     Route: 048
     Dates: start: 20120325, end: 20120408

REACTIONS (5)
  - FATIGUE [None]
  - PLEURAL EFFUSION [None]
  - RASH ERYTHEMATOUS [None]
  - DYSPNOEA [None]
  - ILL-DEFINED DISORDER [None]
